FAERS Safety Report 4552779-6 (Version None)
Quarter: 2005Q1

REPORT INFORMATION
  Report Type: 
  Country: None (occurrence: None)
  Receive Date: 20050114
  Receipt Date: 20040902
  Transmission Date: 20050727
  Serious: Yes (Other)
  Sender: FDA-Public Use
  Company Number: DE-ROCHE-379440

PATIENT
  Age: 68 Year
  Sex: Female

DRUGS (6)
  1. PEG-INTERFERON ALFA 2A (RO 25-8310) [Suspect]
     Indication: HEPATITIS C
     Route: 058
     Dates: start: 20040420, end: 20040830
  2. PEG-INTERFERON ALFA 2A (RO 25-8310) [Suspect]
     Route: 058
     Dates: start: 20040831, end: 20040902
  3. RIBAVIRIN [Suspect]
     Indication: HEPATITIS C
     Route: 048
     Dates: start: 20040420, end: 20040831
  4. BLINDED AMANTADINE [Suspect]
     Indication: HEPATITIS C
     Route: 048
     Dates: start: 20040420, end: 20040902
  5. BISOBETA [Concomitant]
     Route: 048
  6. INDOMED [Concomitant]
     Route: 048

REACTIONS (4)
  - ABDOMINAL PAIN UPPER [None]
  - DRUG ERUPTION [None]
  - PRURITUS [None]
  - VERTIGO [None]
